FAERS Safety Report 10236979 (Version 1)
Quarter: 2014Q1

REPORT INFORMATION
  Report Type: Spontaneous
  Country: US (occurrence: None)
  Receive Date: 20140306
  Receipt Date: 20140306
  Transmission Date: 20141002
  Serious: Yes (Disabling)
  Sender: FDA-Public Use
  Company Number: 163-21880-13054644

PATIENT
  Age: 70 Year
  Sex: Male
  Weight: 73.48 kg

DRUGS (6)
  1. REVLIMID (LENALIDOMIDE) (10 MILLIGRAM, CAPSULES) [Suspect]
     Indication: PLASMA CELL MYELOMA
     Dosage: 10 MG, 14 IN 28 D, PO
     Route: 048
     Dates: start: 201209, end: 201304
  2. VELCADE (BORTEZOMIB) (UNKNOWN) [Concomitant]
  3. SYNTHROID (LEVOTHYROXINE SODIUM) (UNKNOWN) [Concomitant]
  4. BLOOD PRESSURE MEDICATION (CARDIOVASCULAR SYSTEM DRUGS) (UNKNOWN) [Concomitant]
  5. OMEPRAZOLE (OMEPRAZOLE) (UNKNOWN) [Concomitant]
  6. FLOMAX (TAMSULOSIN) (UNKNOWN) [Concomitant]

REACTIONS (1)
  - Plasma cell myeloma [None]
